FAERS Safety Report 8336607-9 (Version None)
Quarter: 2012Q2

REPORT INFORMATION
  Report Type: 
  Country: None (occurrence: None)
  Receive Date: 20120504
  Receipt Date: 20120503
  Transmission Date: 20120825
  Serious: Yes (Death)
  Sender: FDA-Public Use
  Company Number: US-PFIZER INC-2012086649

PATIENT
  Sex: Female
  Weight: 74.5 kg

DRUGS (4)
  1. LEVETIRACETAM [Suspect]
     Indication: CONVULSION
     Dosage: 2X/DAY
     Route: 048
     Dates: start: 20100429
  2. DIVALPROEX SODIUM [Suspect]
     Indication: CONVULSION
     Dosage: 5X/DAY
     Route: 048
     Dates: start: 20100412
  3. NO SUBJECT DRUG [Suspect]
     Indication: CONVULSION
     Dosage: NO DOSE GIVEN
     Route: 030
  4. LYRICA [Suspect]
     Indication: CONVULSION
     Dosage: 75 MG, QHS
     Route: 048
     Dates: start: 20100521

REACTIONS (1)
  - CHOKING [None]
